FAERS Safety Report 20094307 (Version 1)
Quarter: 2021Q4

REPORT INFORMATION
  Report Type: Spontaneous
  Country: FI (occurrence: FI)
  Receive Date: 20211122
  Receipt Date: 20211122
  Transmission Date: 20220303
  Serious: Yes (Life-Threatening)
  Sender: FDA-Public Use
  Company Number: None

PATIENT
  Age: 34 Year
  Sex: Male

DRUGS (5)
  1. ADALIMUMAB [Suspect]
     Active Substance: ADALIMUMAB
     Indication: Crohn^s disease
     Dosage: 80 MILLIGRAM, QMO
     Route: 058
     Dates: start: 20200603, end: 20211018
  2. LITALGIN [METAMIZOLE SODIUM;PITOFENONE HYDROCHLORIDE] [Concomitant]
     Dosage: UNK (AS NECESSARY)
  3. ENTOCORT [Concomitant]
     Active Substance: BUDESONIDE
     Dosage: UNK, AS NECESSARY
  4. FIASP [Concomitant]
     Active Substance: INSULIN ASPART
     Route: 058
  5. LEVEMIR [Concomitant]
     Active Substance: INSULIN DETEMIR
     Route: 058

REACTIONS (9)
  - Hemiparesis [Not Recovered/Not Resolved]
  - Biopsy brain abnormal [Not Recovered/Not Resolved]
  - Status epilepticus [Not Recovered/Not Resolved]
  - Meningitis aseptic [Not Recovered/Not Resolved]
  - Meningitis [Not Recovered/Not Resolved]
  - Magnetic resonance imaging abnormal [Not Recovered/Not Resolved]
  - Encephalitis autoimmune [Not Recovered/Not Resolved]
  - Seizure [Not Recovered/Not Resolved]
  - Neurotoxicity [Not Recovered/Not Resolved]

NARRATIVE: CASE EVENT DATE: 20211001
